FAERS Safety Report 23656213 (Version 1)
Quarter: 2024Q1

REPORT INFORMATION
  Report Type: Spontaneous
  Country: FI (occurrence: FI)
  Receive Date: 20240321
  Receipt Date: 20240321
  Transmission Date: 20240410
  Serious: Yes (Other)
  Sender: FDA-Public Use
  Company Number: FI-CELLTRION INC.-2024FI005756

PATIENT

DRUGS (1)
  1. YUFLYMA [Suspect]
     Active Substance: ADALIMUMAB-AATY
     Indication: Rheumatoid arthritis
     Dosage: 40 MG
     Route: 058

REACTIONS (5)
  - Atrial fibrillation [Unknown]
  - Device malfunction [Unknown]
  - Product leakage [Unknown]
  - Exposure via skin contact [Unknown]
  - Accidental exposure to product [Unknown]
